FAERS Safety Report 5303556-X (Version None)
Quarter: 2007Q2

REPORT INFORMATION
  Report Type: 
  Country: None (occurrence: None)
  Receive Date: 20070420
  Receipt Date: 20070410
  Transmission Date: 20071010
  Serious: Yes (Death)
  Sender: FDA-Public Use
  Company Number: US-AMGEN-US218994

PATIENT
  Age: 84 Year
  Sex: Male

DRUGS (5)
  1. PROCRIT [Suspect]
     Indication: RENAL FAILURE CHRONIC
     Route: 065
     Dates: start: 20060807, end: 20060824
  2. ARANESP [Suspect]
     Indication: RENAL FAILURE CHRONIC
     Route: 065
  3. ASPIRIN [Concomitant]
     Route: 065
  4. LEVOXYL [Concomitant]
     Route: 065
  5. LIPITOR [Concomitant]
     Route: 065

REACTIONS (2)
  - BLOOD URINE PRESENT [None]
  - DEATH [None]
